FAERS Safety Report 11387870 (Version 8)
Quarter: 2016Q1

REPORT INFORMATION
  Report Type: Spontaneous
  Country: US (occurrence: US)
  Receive Date: 20150817
  Receipt Date: 20160325
  Transmission Date: 20160525
  Serious: No
  Sender: FDA-Public Use
  Company Number: US-VERTEX PHARMACEUTICALS-2015-003158

PATIENT
  Age: 20 Year
  Sex: Female

DRUGS (2)
  1. ORKAMBI [Suspect]
     Active Substance: IVACAFTOR\LUMACAFTOR
     Indication: CYSTIC FIBROSIS
     Dosage: LUMACAFTOR 400 MG / IVACAFTOR 250 MG, BID
     Route: 048
     Dates: start: 20150805
  2. CAYSTON [Concomitant]
     Active Substance: AZTREONAM

REACTIONS (43)
  - Pharyngeal oedema [Unknown]
  - Palpitations [Unknown]
  - Dizziness [Unknown]
  - Abdominal pain upper [Unknown]
  - Bronchial obstruction [Unknown]
  - Fatigue [Unknown]
  - Dyspnoea [Unknown]
  - Nasopharyngitis [Unknown]
  - Feeling abnormal [Unknown]
  - Insomnia [Unknown]
  - Back pain [Unknown]
  - Abnormal dreams [Unknown]
  - Cough [Unknown]
  - Blood glucose decreased [Unknown]
  - Paranasal sinus discomfort [Unknown]
  - Peripheral swelling [Unknown]
  - Secretion discharge [Unknown]
  - Photophobia [Unknown]
  - Paranasal sinus hypersecretion [Unknown]
  - Headache [Unknown]
  - Pulmonary function test decreased [Unknown]
  - Hunger [Unknown]
  - Respiration abnormal [Not Recovered/Not Resolved]
  - Chest pain [Unknown]
  - Nasal pruritus [Unknown]
  - Wheezing [Unknown]
  - Acne cystic [Unknown]
  - Haemoptysis [Unknown]
  - Throat irritation [Unknown]
  - Nausea [Unknown]
  - Dysphonia [Unknown]
  - Speech disorder [Unknown]
  - Asthenia [Unknown]
  - Lymphadenopathy [Unknown]
  - Gastritis [Unknown]
  - Vomiting [Unknown]
  - Hot flush [Unknown]
  - Throat tightness [Unknown]
  - Musculoskeletal chest pain [Unknown]
  - Tremor [Unknown]
  - Gastrooesophageal reflux disease [Not Recovered/Not Resolved]
  - Weight increased [Unknown]
  - Decreased appetite [Unknown]

NARRATIVE: CASE EVENT DATE: 201508
